FAERS Safety Report 4392163-1 (Version None)
Quarter: 2004Q3

REPORT INFORMATION
  Report Type: 
  Country: None (occurrence: None)
  Receive Date: 20040702
  Receipt Date: 20040329
  Transmission Date: 20050211
  Serious: Yes (Other)
  Sender: FDA-Public Use
  Company Number: 2004UW06165

PATIENT
  Age: 57 Year
  Sex: Female
  Weight: 53.978 kg

DRUGS (1)
  1. CRESTOR [Suspect]
     Indication: BLOOD CHOLESTEROL INCREASED
     Dosage: NI
     Dates: start: 20040319

REACTIONS (2)
  - CONSTIPATION [None]
  - SWELLING [None]
